FAERS Safety Report 5857320-3 (Version None)
Quarter: 2008Q3

REPORT INFORMATION
  Report Type: 
  Country: None (occurrence: None)
  Receive Date: 20080826
  Receipt Date: 20080813
  Transmission Date: 20090109
  Serious: Yes (Other)
  Sender: FDA-Public Use
  Company Number: DE-RANBAXY-2008RR-17362

PATIENT

DRUGS (2)
  1. CARVEDILOL RANBAXY 6.25 MG COMPRIMIDOS [Suspect]
     Indication: HYPERTENSION
     Dosage: 1.5 DF, QD
     Route: 048
     Dates: start: 20080520
  2. LANSOPRAZOLE [Concomitant]
     Indication: BARRETT'S OESOPHAGUS

REACTIONS (1)
  - GASTRIC ULCER [None]
